FAERS Safety Report 18920648 (Version 1)
Quarter: 2021Q1

REPORT INFORMATION
  Report Type: Spontaneous
  Country: IT (occurrence: IT)
  Receive Date: 20210222
  Receipt Date: 20210222
  Transmission Date: 20210420
  Serious: Yes (Hospitalization)
  Sender: FDA-Public Use
  Company Number: IT-TEVA-2021-IT-1881663

PATIENT
  Age: 58 Year
  Sex: Female

DRUGS (4)
  1. AMISULPRIDE [Concomitant]
     Active Substance: AMISULPRIDE
     Indication: DEPRESSION
     Dosage: 1 DOSAGE FORMS
     Route: 048
  2. FLUOXETINE [Concomitant]
     Active Substance: FLUOXETINE HYDROCHLORIDE
     Indication: DEPRESSION
     Dosage: 1 DOSAGE FORMS
     Route: 048
  3. QUETIAPINE. [Suspect]
     Active Substance: QUETIAPINE
     Indication: DEPRESSION
     Dosage: 1 DOSAGE FORMS
     Route: 048
     Dates: start: 20190613, end: 20190613
  4. TAVOR 2,5 MG COMPRESSE [Suspect]
     Active Substance: LORAZEPAM
     Indication: DEPRESSION
     Dosage: 1 DOSAGE FORMS
     Route: 048
     Dates: start: 20190613, end: 20190613

REACTIONS (5)
  - Miosis [Recovering/Resolving]
  - Drug abuse [Recovering/Resolving]
  - Hypoxia [Recovering/Resolving]
  - Sopor [Recovering/Resolving]
  - Loss of consciousness [Recovering/Resolving]

NARRATIVE: CASE EVENT DATE: 20190613
